FAERS Safety Report 15182567 (Version 1)
Quarter: 2018Q3

REPORT INFORMATION
  Report Type: Report from Study
  Country: US (occurrence: US)
  Receive Date: 20180723
  Receipt Date: 20180723
  Transmission Date: 20181010
  Serious: No
  Sender: FDA-Public Use
  Company Number: US-AMGEN-USASL2018093429

PATIENT
  Age: 63 Year
  Sex: Female

DRUGS (1)
  1. REPATHA [Suspect]
     Active Substance: EVOLOCUMAB
     Indication: BLOOD CHOLESTEROL INCREASED
     Dosage: 140 MG, Q2WK
     Route: 065

REACTIONS (9)
  - Hypoacusis [Not Recovered/Not Resolved]
  - Rhinorrhoea [Unknown]
  - Feeling abnormal [Unknown]
  - Headache [Not Recovered/Not Resolved]
  - Paraesthesia oral [Not Recovered/Not Resolved]
  - Glossodynia [Not Recovered/Not Resolved]
  - Tinnitus [Not Recovered/Not Resolved]
  - Drooling [Not Recovered/Not Resolved]
  - Dizziness postural [Unknown]

NARRATIVE: CASE EVENT DATE: 20180630
